FAERS Safety Report 8281471-X (Version None)
Quarter: 2012Q2

REPORT INFORMATION
  Report Type: 
  Country: None (occurrence: None)
  Receive Date: 20120413
  Receipt Date: 20120406
  Transmission Date: 20120825
  Serious: Yes (Other)
  Sender: FDA-Public Use
  Company Number: US-PFIZER INC-2012088203

PATIENT

DRUGS (1)
  1. LYRICA [Suspect]
     Dosage: UNK

REACTIONS (6)
  - SPINAL CORD DISORDER [None]
  - LIVER DISORDER [None]
  - IMPAIRED WORK ABILITY [None]
  - PAIN [None]
  - FEELING OF DESPAIR [None]
  - FEELING ABNORMAL [None]
